FAERS Safety Report 12422925 (Version 1)
Quarter: 2016Q2

REPORT INFORMATION
  Report Type: Spontaneous
  Country: FR (occurrence: FR)
  Receive Date: 20160601
  Receipt Date: 20160601
  Transmission Date: 20160815
  Serious: Yes (Hospitalization)
  Sender: FDA-Public Use
  Company Number: FR-ROCHE-1767334

PATIENT
  Age: 59 Year
  Sex: Male

DRUGS (6)
  1. NEOMERCAZOLE [Concomitant]
     Active Substance: CARBIMAZOLE
  2. FOLINIC ACID [Concomitant]
     Active Substance: LEUCOVORIN
  3. FLUOROURACILE ACCORD [Suspect]
     Active Substance: FLUOROURACIL
     Indication: COLORECTAL ADENOCARCINOMA
     Route: 040
     Dates: start: 20150522, end: 20160420
  4. OXALIPLATINO TEVA [Suspect]
     Active Substance: OXALIPLATIN
     Indication: COLORECTAL ADENOCARCINOMA
     Route: 065
     Dates: start: 20150522, end: 20160420
  5. AVASTIN [Suspect]
     Active Substance: BEVACIZUMAB
     Indication: COLORECTAL ADENOCARCINOMA
     Route: 041
     Dates: start: 20150522, end: 20160420
  6. FLUOROURACILE ACCORD [Suspect]
     Active Substance: FLUOROURACIL
     Route: 041
     Dates: start: 20150522, end: 20160420

REACTIONS (3)
  - Condition aggravated [Not Recovered/Not Resolved]
  - Cardiac failure [Not Recovered/Not Resolved]
  - Ejection fraction decreased [Not Recovered/Not Resolved]

NARRATIVE: CASE EVENT DATE: 20150608
